FAERS Safety Report 9661156 (Version 3)
Quarter: 2013Q4

REPORT INFORMATION
  Report Type: Spontaneous
  Country: JP (occurrence: JP)
  Receive Date: 20131031
  Receipt Date: 20131112
  Transmission Date: 20140711
  Serious: Yes (Other)
  Sender: FDA-Public Use
  Company Number: JP-MERCK-1310JPN012586

PATIENT
  Age: 48 Year
  Sex: Male

DRUGS (7)
  1. GASTER [Suspect]
     Indication: ALLERGY PROPHYLAXIS
     Dosage: 20 MG, QW
     Route: 042
  2. GASTER [Suspect]
     Indication: PREMEDICATION
  3. DIPHENHYDRAMINE HYDROCHLORIDE [Suspect]
     Indication: PREMEDICATION
     Dosage: 50 MG, QW
     Route: 048
  4. DEXAMETHASONE [Suspect]
     Indication: PREMEDICATION
     Dosage: 13.2 MG, QW
     Route: 042
  5. PACLITAXEL [Suspect]
     Indication: CHEMOTHERAPY
     Dosage: 80 MG/M2, QW
     Route: 041
  6. SODIUM CHLORIDE [Concomitant]
     Dosage: ISOTONIC SODIUM CHLORIDE SOLUTION
  7. DEXTROSE [Concomitant]

REACTIONS (2)
  - Hypersensitivity [Unknown]
  - Off label use [Unknown]
